FAERS Safety Report 9606725 (Version 2)
Quarter: 2013Q4

REPORT INFORMATION
  Report Type: Spontaneous
  Country: US (occurrence: US)
  Receive Date: 20131008
  Receipt Date: 20131008
  Transmission Date: 20140711
  Serious: No
  Sender: FDA-Public Use
  Company Number: US-AMGEN-USASP2013064233

PATIENT
  Age: 95 Year
  Sex: Female
  Weight: 46.26 kg

DRUGS (9)
  1. PROLIA [Suspect]
     Indication: OSTEOPOROSIS POSTMENOPAUSAL
     Dosage: 60 MG, Q6MO
     Route: 058
     Dates: start: 20130731, end: 20130828
  2. DIGOXIN [Concomitant]
     Dosage: 125 MUG, QD
     Route: 048
  3. ICAPS                              /07499601/ [Concomitant]
     Indication: VITAMIN SUPPLEMENTATION
     Dosage: UNK UNK, QD
     Route: 048
  4. LISINOPRIL HCTZ [Concomitant]
     Dosage: 20/125 QD
     Route: 048
  5. NIFEDIPINE [Concomitant]
     Dosage: 30 MG, QD
     Route: 048
  6. KCL [Concomitant]
     Dosage: 10 MUG, QD
     Route: 048
  7. CALCIUM [Concomitant]
     Dosage: 2 DF, BID
  8. VITAMIN D3 [Concomitant]
     Dosage: 400 IU, QD
  9. WARFARIN SODIUM [Concomitant]
     Dosage: UNK UNK, QD

REACTIONS (3)
  - Pruritus [Unknown]
  - Eczema [Unknown]
  - Erythema [Recovered/Resolved]
